FAERS Safety Report 19657475 (Version 2)
Quarter: 2021Q3

REPORT INFORMATION
  Report Type: Spontaneous
  Country: CN (occurrence: CN)
  Receive Date: 20210804
  Receipt Date: 20210817
  Transmission Date: 20211014
  Serious: Yes (Hospitalization, Other)
  Sender: FDA-Public Use
  Company Number: CN-ELI_LILLY_AND_COMPANY-CN202107010621

PATIENT
  Sex: Female
  Weight: 50 kg

DRUGS (4)
  1. HUMULIN 70/30 [Suspect]
     Active Substance: INSULIN HUMAN
     Indication: DIABETES MELLITUS
     Dosage: 14 INTERNATIONAL UNIT, EACH MORNING
     Route: 058
     Dates: start: 201808
  2. HUMULIN 70/30 [Suspect]
     Active Substance: INSULIN HUMAN
     Dosage: 12 INTERNATIONAL UNIT, EACH EVENING
     Route: 058
     Dates: start: 201809
  3. HUMULIN 70/30 [Suspect]
     Active Substance: INSULIN HUMAN
     Dosage: 10 INTERNATIONAL UNIT, EACH EVENING
     Route: 058
  4. HUMULIN 70/30 [Suspect]
     Active Substance: INSULIN HUMAN
     Dosage: 12 INTERNATIONAL UNIT, EACH MORNING
     Route: 058

REACTIONS (4)
  - Pyrexia [Unknown]
  - Hypertension [Unknown]
  - Hepatic cyst [Unknown]
  - Liver abscess [Unknown]
